FAERS Safety Report 4931822-6 (Version None)
Quarter: 2006Q1

REPORT INFORMATION
  Report Type: 
  Country: None (occurrence: None)
  Receive Date: 20060303
  Receipt Date: 20060202
  Transmission Date: 20060701
  Serious: Yes (Other)
  Sender: FDA-Public Use
  Company Number: 2006AP00557

PATIENT
  Age: 88 Year
  Sex: Male
  Weight: 42 kg

DRUGS (3)
  1. MEROPEN [Suspect]
     Indication: PNEUMONIA
     Route: 041
     Dates: start: 20051216, end: 20051221
  2. NEOPHYLLIN [Suspect]
     Indication: ACUTE RESPIRATORY FAILURE
     Route: 041
     Dates: start: 20051216, end: 20051220
  3. SOL-MEDROL [Concomitant]
     Indication: ACUTE RESPIRATORY FAILURE
     Route: 041
     Dates: start: 20051216, end: 20051218

REACTIONS (4)
  - ALANINE AMINOTRANSFERASE INCREASED [None]
  - ASPARTATE AMINOTRANSFERASE INCREASED [None]
  - GAMMA-GLUTAMYLTRANSFERASE INCREASED [None]
  - HEPATIC FUNCTION ABNORMAL [None]
